FAERS Safety Report 5794403-0 (Version None)
Quarter: 2008Q2

REPORT INFORMATION
  Report Type: 
  Country: None (occurrence: None)
  Receive Date: 20080623
  Receipt Date: 20080606
  Transmission Date: 20081010
  Serious: Yes (Hospitalization)
  Sender: FDA-Public Use
  Company Number: THYM-1000713

PATIENT
  Age: 43 Year
  Sex: Female
  Weight: 69 kg

DRUGS (4)
  1. THYMOGLOBULIN [Suspect]
     Indication: STEM CELL TRANSPLANT
     Dosage: 350 MG, QD, INTRAVENOUS
     Route: 042
     Dates: start: 20061022, end: 20061026
  2. BUSULPHAN (BUSULFAN) [Suspect]
     Indication: STEM CELL TRANSPLANT
     Dosage: 224 MG, QD, INTRAVENOUS
     Route: 042
     Dates: start: 20061019, end: 20061020
  3. FLUDARABINE (FLUDARABINE PHOSPHATE) [Suspect]
     Indication: STEM CELL TRANSPLANT
     Dosage: 90 MG, QD, ORAL
     Route: 048
     Dates: start: 20061016, end: 20061021
  4. CAMPATH [Suspect]
     Indication: T-CELL DEPLETION
     Dosage: 20 MG, ONCE, INTRAVENOUS
     Route: 042
     Dates: start: 20061020, end: 20061020

REACTIONS (2)
  - EPSTEIN-BARR VIRUS INFECTION [None]
  - LYMPHADENOPATHY [None]
